FAERS Safety Report 21487231 (Version 2)
Quarter: 2022Q4

REPORT INFORMATION
  Report Type: Spontaneous
  Country: PL (occurrence: PL)
  Receive Date: 20221020
  Receipt Date: 20221020
  Transmission Date: 20230112
  Serious: Yes (Other)
  Sender: FDA-Public Use
  Company Number: PL-SA-2018SA004426

PATIENT
  Age: 70 Year
  Sex: Female

DRUGS (23)
  1. CARBIDOPA\LEVODOPA [Interacting]
     Active Substance: CARBIDOPA\LEVODOPA
     Indication: Parkinson^s disease
     Dosage: 100/25 MG 4 TIMES A DAY AT 7.00 AM, 11.00 AM, 3.00 PM AND 7.00 PM
     Route: 065
  2. CARBIDOPA\LEVODOPA [Interacting]
     Active Substance: CARBIDOPA\LEVODOPA
     Dosage: PROLONGED RELEASE LEVODOPA/CARBIDOPA 200/50 MG, 1X/DAY AT 10:00PM
  3. CARBIDOPA\LEVODOPA [Interacting]
     Active Substance: CARBIDOPA\LEVODOPA
     Dosage: 100/25 MG; AT 7.00, 11.00, 15.00 AND 19.00
     Route: 065
  4. CLOZAPINE [Interacting]
     Active Substance: CLOZAPINE
     Indication: Hallucinations, mixed
     Dosage: UNK
     Route: 065
  5. AMITRIPTYLINE HYDROCHLORIDE [Interacting]
     Active Substance: AMITRIPTYLINE HYDROCHLORIDE
     Indication: Sleep disorder
     Dosage: 25 MG,QD
     Route: 065
  6. AMITRIPTYLINE HYDROCHLORIDE [Interacting]
     Active Substance: AMITRIPTYLINE HYDROCHLORIDE
     Indication: Depression
     Dosage: UNK UNK,UNK
     Route: 065
  7. HYDROXYZINE HYDROCHLORIDE [Interacting]
     Active Substance: HYDROXYZINE HYDROCHLORIDE
     Indication: Anxiety disorder
     Dosage: 25 MG AD HOC ADMINISTERED DUE TO ANXIETY DISORDERS
  8. BIPERIDEN [Interacting]
     Active Substance: BIPERIDEN
     Indication: Parkinson^s disease
     Dosage: 4 MG,QD
  9. OXYBUTYNIN CHLORIDE [Interacting]
     Active Substance: OXYBUTYNIN CHLORIDE
     Indication: Urinary incontinence
     Dosage: 15 MG,QD
  10. AMANTADINE [Interacting]
     Active Substance: AMANTADINE
     Indication: Parkinson^s disease
     Dosage: IN THE MORNING AND AT NOON
  11. ROPINIROLE [Interacting]
     Active Substance: ROPINIROLE
     Indication: Parkinson^s disease
     Dosage: 8 MG ONES DAILY (AT THE MORNING), THEN THE DOSE REDUCED BY 2 MG, STRENGTH: 8 MG; IN MORNING
  12. ROPINIROLE [Interacting]
     Active Substance: ROPINIROLE
     Dosage: DOSE REDUCED TILL 2 MG/ DAY
  13. ROPINIROLE [Interacting]
     Active Substance: ROPINIROLE
     Dosage: 2 MG,QD
     Route: 048
  14. ROPINIROLE [Interacting]
     Active Substance: ROPINIROLE
     Dosage: 8 MG,QD
     Route: 048
  15. ROPINIROLE [Interacting]
     Active Substance: ROPINIROLE
     Dosage: 6 MG, QD
  16. RIVASTIGMINE [Interacting]
     Active Substance: RIVASTIGMINE
     Dosage: UNK UNK,UNK
     Route: 065
  17. RASAGILINE TARTRATE [Interacting]
     Active Substance: RASAGILINE TARTRATE
     Indication: Parkinson^s disease
     Dosage: 1 MG,QD, IN MORNING
     Route: 065
  18. LEVODOPA [Suspect]
     Active Substance: LEVODOPA
     Indication: Product used for unknown indication
     Dosage: 100 MG, QID
  19. CARBIDOPA\LEVODOPA [Suspect]
     Active Substance: CARBIDOPA\LEVODOPA
  20. HYDROXYZINE [Suspect]
     Active Substance: HYDROXYZINE HYDROCHLORIDE
     Indication: Anxiety disorder
     Dosage: 25 MG,QD
  21. AMOXICILLIN [Concomitant]
     Active Substance: AMOXICILLIN
     Indication: Pneumonia
     Dosage: UNK
  22. CARBIDOPA\LEVODOPA [Concomitant]
     Active Substance: CARBIDOPA\LEVODOPA
     Indication: Parkinson^s disease
     Dosage: 200/50 MG; AT 22.00
  23. HYDROXYZINE [Concomitant]
     Active Substance: HYDROXYZINE HYDROCHLORIDE
     Indication: Anxiety disorder
     Dosage: 25 MG,QD

REACTIONS (18)
  - Hallucinations, mixed [Recovered/Resolved]
  - Pneumonia [Recovering/Resolving]
  - Anxiety [Unknown]
  - Psychotic symptom [Unknown]
  - Cerebral atrophy [Unknown]
  - Parkinson^s disease [Unknown]
  - Neutrophil count increased [Unknown]
  - C-reactive protein increased [Unknown]
  - Labelled drug-drug interaction medication error [Unknown]
  - White blood cell count increased [Unknown]
  - Mental impairment [Unknown]
  - Dementia [Unknown]
  - Resting tremor [Unknown]
  - Musculoskeletal stiffness [Unknown]
  - On and off phenomenon [Unknown]
  - Bradykinesia [Unknown]
  - Drug interaction [Unknown]
  - White blood cell count increased [Unknown]
